FAERS Safety Report 6267743-9 (Version None)
Quarter: 2009Q3

REPORT INFORMATION
  Report Type: 
  Country: None (occurrence: None)
  Receive Date: 20090710
  Receipt Date: 20090626
  Transmission Date: 20100115
  Serious: Yes (Hospitalization)
  Sender: FDA-Public Use
  Company Number: DSJ-2009-06989

PATIENT
  Age: 72 Year
  Sex: Female
  Weight: 45 kg

DRUGS (8)
  1. OLMESARTAN MEDOXOMIL [Suspect]
     Indication: HYPERTENSION
     Dosage: 15 MG (15 MG, 1 IN 1 D), PER ORAL
     Route: 048
     Dates: start: 20090212, end: 20090522
  2. LEVOFLOXACIN [Suspect]
     Indication: DRUG USE FOR UNKNOWN INDICATION
     Dosage: 600 MG (200 MG, 3 IN 1 D), PER ORAL
     Route: 048
     Dates: start: 20090518, end: 20090522
  3. MEFENAMIC ACID [Suspect]
     Indication: DRUG USE FOR UNKNOWN INDICATION
     Dosage: 750 MG (250 MG, 3 IN 1 D), PER ORAL
     Route: 048
     Dates: start: 20090518, end: 20090522
  4. NORMONAL (TRIPAMIDE) (TABLET) (TRIPAMIDE) [Suspect]
     Indication: DRUG USE FOR UNKNOWN INDICATION
     Dosage: PER ORAL
     Route: 048
     Dates: start: 20090518, end: 20090522
  5. SAWATENE (CARBOCISTEINE) (TABLET) (CARBOCISTEINE) [Concomitant]
  6. ASVERIN (TIPEPIDINE HIBENZATE) (TABLET) (TIPEPIDINE HIBENZATE) [Concomitant]
  7. GRIMAC (LEVOGLUTAMIDE, SODIUM GUALENATE) (GRANULES) (LEVOGLUTAMIDE, SO [Concomitant]
  8. ABODARS (SODIUM GUALENATE) (SODIUM GUALENATE) [Concomitant]

REACTIONS (14)
  - BLOOD PRESSURE SYSTOLIC INCREASED [None]
  - CHILLS [None]
  - CONVULSION [None]
  - DECREASED APPETITE [None]
  - DEHYDRATION [None]
  - FALL [None]
  - FOAMING AT MOUTH [None]
  - LOSS OF CONSCIOUSNESS [None]
  - MEMORY IMPAIRMENT [None]
  - METABOLIC ACIDOSIS [None]
  - PARAESTHESIA ORAL [None]
  - RENAL FAILURE ACUTE [None]
  - SOMNOLENCE [None]
  - SYNCOPE [None]
